FAERS Safety Report 8711234 (Version 5)
Quarter: 2013Q1

REPORT INFORMATION
  Report Type: Spontaneous
  Country: None (occurrence: None)
  Receive Date: 20120720
  Receipt Date: 20120926
  Transmission Date: 20140127
  Serious: Yes (Hospitalization, Other)
  Sender: FDA-Public Use
  Company Number: AUR-APL-2012-02959

PATIENT
  Age: 51 Year
  Sex: Male

DRUGS (4)
  1. MIRTAZAPINE (MIRTAZAPINE) [Suspect]
     Dosage: (30 MG),ORAL
     Route: 048
     Dates: end: 20120519
  2. GLIMEPIRIDE (GLIMEPIRIDE) [Concomitant]
  3. METFORMIN HYDROCHLORIDE [Concomitant]
  4. SIMVASTATIN [Concomitant]

REACTIONS (7)
  - AGITATION [None]
  - CONFUSIONAL STATE [None]
  - CONVULSION [None]
  - ENCEPHALITIS [None]
  - ENCEPHALOPATHY [None]
  - NEUROLEPTIC MALIGNANT SYNDROME [None]
  - BLOOD LACTIC ACID INCREASED [None]
